FAERS Safety Report 8078103-2 (Version None)
Quarter: 2012Q1

REPORT INFORMATION
  Report Type: 
  Country: None (occurrence: None)
  Receive Date: 20120127
  Receipt Date: 20110111
  Transmission Date: 20120608
  Serious: Yes (Other)
  Sender: FDA-Public Use
  Company Number: US-ABBOTT-10P-163-0686488-00

PATIENT
  Age: 86 Year
  Sex: Female
  Weight: 195 kg

DRUGS (2)
  1. HUMIRA [Suspect]
     Indication: RHEUMATOID ARTHRITIS
     Route: 058
     Dates: start: 20070101, end: 20101022
  2. METHOTREXATE [Concomitant]
     Indication: PRODUCT USED FOR UNKNOWN INDICATION
     Route: 048

REACTIONS (1)
  - B-CELL LYMPHOMA STAGE III [None]
